FAERS Safety Report 5150979-8 (Version None)
Quarter: 2006Q4

REPORT INFORMATION
  Report Type: 
  Country: None (occurrence: None)
  Receive Date: 20061108
  Receipt Date: 20061031
  Transmission Date: 20070319
  Serious: Yes (Other)
  Sender: FDA-Public Use
  Company Number: 2006132431

PATIENT
  Sex: Female

DRUGS (2)
  1. ATORVASTATIN CALCIUM [Suspect]
     Indication: DRUG USE FOR UNKNOWN INDICATION
     Dosage: 40 MG
  2. BENFLUOREX (BENFLUOREX) [Suspect]

REACTIONS (2)
  - AORTIC VALVE DISEASE [None]
  - MITRAL VALVE DISEASE MIXED [None]
